FAERS Safety Report 5023483-5 (Version None)
Quarter: 2006Q2

REPORT INFORMATION
  Report Type: 
  Country: None (occurrence: None)
  Receive Date: 20060612
  Receipt Date: 20060529
  Transmission Date: 20061013
  Serious: Yes (Hospitalization)
  Sender: FDA-Public Use
  Company Number: DEWYE657829MAY06

PATIENT
  Sex: Female
  Weight: 18.2 kg

DRUGS (3)
  1. ENBREL [Suspect]
     Indication: JUVENILE ARTHRITIS
     Route: 058
     Dates: start: 20060130
  2. FOLIC ACID [Suspect]
     Route: 048
  3. NAPROXEN [Suspect]
     Indication: JUVENILE ARTHRITIS
     Route: 048

REACTIONS (3)
  - CHOLECYSTITIS [None]
  - RENAL FAILURE [None]
  - VARICELLA [None]
